FAERS Safety Report 9277419 (Version 3)
Quarter: 2015Q4

REPORT INFORMATION
  Report Type: Report from Study
  Country: GB (occurrence: GB)
  Receive Date: 20130508
  Receipt Date: 20151218
  Transmission Date: 20160305
  Serious: Yes (Other)
  Sender: FDA-Public Use
  Company Number: GB-ROCHE-1222321

PATIENT

DRUGS (3)
  1. CAPECITABINE. [Suspect]
     Active Substance: CAPECITABINE
     Dosage: ON DAYS OF RADIOTHERAPY MONDAY TO FRIDAY ONLY
     Route: 048
  2. CAPECITABINE. [Suspect]
     Active Substance: CAPECITABINE
     Indication: PANCREATIC CARCINOMA
     Dosage: INDUCTION PERIOD 3 CYCLES: ON DAY 1 TO 21 OF THE 28 DAYS CYCLE
     Route: 048
  3. GEMCITABINE [Suspect]
     Active Substance: GEMCITABINE\GEMCITABINE HYDROCHLORIDE
     Indication: PANCREATIC CARCINOMA
     Dosage: INDUCTION PERIOD 3 CYCLES: FOR 1 H ON DAYS 1, 8, AND 15 OF A 28 DAY CYCLE
     Route: 042

REACTIONS (1)
  - Hepatic function abnormal [Unknown]
